FAERS Safety Report 7513767-0 (Version None)
Quarter: 2011Q2

REPORT INFORMATION
  Report Type: 
  Country: None (occurrence: None)
  Receive Date: 20110531
  Receipt Date: 20110411
  Transmission Date: 20111010
  Serious: Yes (Other)
  Sender: FDA-Public Use
  Company Number: US-BAYER-2011-006984

PATIENT
  Age: 24 Year
  Sex: Female
  Weight: 59 kg

DRUGS (7)
  1. ACYCLOVIR [Concomitant]
     Indication: GENITAL HERPES
  2. PROZAC [Concomitant]
  3. ALBUTEROL SULFATE AUTOHALER [Concomitant]
     Indication: ASTHMA
  4. YASMIN [Suspect]
     Indication: PRODUCT USED FOR UNKNOWN INDICATION
     Dates: start: 20061001, end: 20080801
  5. FIORICET [Concomitant]
     Indication: MIGRAINE
  6. PRILOSEC [Concomitant]
  7. YAZ [Suspect]
     Indication: PRODUCT USED FOR UNKNOWN INDICATION
     Dates: start: 20061001, end: 20080801

REACTIONS (5)
  - INJURY [None]
  - PAIN [None]
  - CHOLECYSTITIS CHRONIC [None]
  - GASTRIC DISORDER [None]
  - CHOLELITHIASIS [None]
